FAERS Safety Report 9466470 (Version 1)
Quarter: 2013Q3

REPORT INFORMATION
  Report Type: Spontaneous
  Country: ES (occurrence: ES)
  Receive Date: 20130820
  Receipt Date: 20130820
  Transmission Date: 20140515
  Serious: Yes (Other)
  Sender: FDA-Public Use
  Company Number: ES-AMGEN-ESPSP2013056955

PATIENT
  Age: 65 Year
  Sex: Female

DRUGS (1)
  1. PROLIA [Suspect]
     Indication: OSTEOPOROSIS
     Dosage: UNK
     Route: 065
     Dates: start: 20130221

REACTIONS (5)
  - Joint dislocation [Not Recovered/Not Resolved]
  - Speech disorder [Not Recovered/Not Resolved]
  - Deformity [Not Recovered/Not Resolved]
  - Oral pain [Recovering/Resolving]
  - Pain in jaw [Recovering/Resolving]
